FAERS Safety Report 7875790-6 (Version None)
Quarter: 2011Q4

REPORT INFORMATION
  Report Type: 
  Country: None (occurrence: None)
  Receive Date: 20111031
  Receipt Date: 20111016
  Transmission Date: 20120403
  Serious: Yes (Congenital Anomaly, Other)
  Sender: FDA-Public Use
  Company Number: PHHY2011PL95299

PATIENT

DRUGS (3)
  1. PREDNISONE [Concomitant]
     Dosage: UNK UKN, UNK
     Route: 064
  2. AZATHIOPRINE [Concomitant]
     Dosage: UNK UKN, UNK
     Route: 064
  3. CYCLOSPORINE [Suspect]
     Indication: LIVER TRANSPLANT
     Dosage: UNK UKN, UNK
     Route: 064

REACTIONS (3)
  - CONGENITAL RENAL DISORDER [None]
  - MATERNAL EXPOSURE DURING PREGNANCY [None]
  - URINARY TRACT MALFORMATION [None]
